FAERS Safety Report 14852621 (Version 1)
Quarter: 2018Q2

REPORT INFORMATION
  Report Type: Report from Study
  Country: CA (occurrence: CA)
  Receive Date: 20180507
  Receipt Date: 20180507
  Transmission Date: 20180711
  Serious: Yes (Death, Hospitalization, Other)
  Sender: FDA-Public Use
  Company Number: CA-TOLMAR, INC.-2018CA003518

PATIENT

DRUGS (1)
  1. ELIGARD [Suspect]
     Active Substance: LEUPROLIDE ACETATE
     Indication: PROSTATE CANCER
     Dosage: 22.5 MG, EVERY 3MONTHS
     Route: 058
     Dates: start: 20081019, end: 20180116

REACTIONS (7)
  - Death [Fatal]
  - Urinary tract infection [Recovering/Resolving]
  - Dementia [Recovering/Resolving]
  - Localised infection [Unknown]
  - Hospitalisation [Unknown]
  - Coma [Unknown]
  - General physical health deterioration [Unknown]

NARRATIVE: CASE EVENT DATE: 20180317
